FAERS Safety Report 8525732 (Version 2)
Quarter: 2012Q4

REPORT INFORMATION
  Report Type: 
  Country: FR (occurrence: FR)
  Receive Date: 20120423
  Receipt Date: 20120831
  Transmission Date: 20130627
  Serious: Yes (Hospitalization)
  Sender: FDA-Public Use
  Company Number: FR-JNJFOC-20120407680

PATIENT
  Age: 24 Year
  Sex: Male
  Weight: 62 kg

DRUGS (1)
  1. RISPERDAL CONSTA [Suspect]
     Indication: SCHIZOPHRENIA
     Dosage: for more than 1 year
     Route: 030

REACTIONS (2)
  - Lymphadenopathy [Recovered/Resolved with Sequelae]
  - Infection [Unknown]
